FAERS Safety Report 7883553-0 (Version None)
Quarter: 2011Q4

REPORT INFORMATION
  Report Type: 
  Country: None (occurrence: None)
  Receive Date: 20111031
  Receipt Date: 20111017
  Transmission Date: 20120403
  Serious: Yes (Hospitalization)
  Sender: FDA-Public Use
  Company Number: 2011P1009492

PATIENT
  Age: 4 Year
  Sex: Female

DRUGS (1)
  1. ALBENDAZOLE (NO PREF. NAME) [Suspect]
     Indication: PROPHYLAXIS

REACTIONS (11)
  - STARING [None]
  - URINARY INCONTINENCE [None]
  - CARDIAC MURMUR [None]
  - URTICARIA [None]
  - RALES [None]
  - SINUS TACHYCARDIA [None]
  - RASH [None]
  - CONVULSION [None]
  - FOAMING AT MOUTH [None]
  - LOSS OF CONSCIOUSNESS [None]
  - MUSCLE TWITCHING [None]
